FAERS Safety Report 14604778 (Version 1)
Quarter: 2018Q1

REPORT INFORMATION
  Report Type: Report from Study
  Country: KR (occurrence: KR)
  Receive Date: 20180306
  Receipt Date: 20180306
  Transmission Date: 20180509
  Serious: Yes (Hospitalization)
  Sender: FDA-Public Use
  Company Number: KR-EISAI MEDICAL RESEARCH-EC-2018-036812

PATIENT
  Age: 40 Year
  Sex: Female
  Weight: 45 kg

DRUGS (8)
  1. HALAVEN [Suspect]
     Active Substance: ERIBULIN MESYLATE
     Indication: BREAST CANCER
     Route: 041
     Dates: start: 20170228, end: 20170228
  2. GODEX [Concomitant]
  3. ACERTIL [Concomitant]
     Active Substance: PERINDOPRIL ARGININE
  4. CHOONGWAE ADELAVIN [Concomitant]
  5. LEUCOSTIM [Concomitant]
     Active Substance: FILGRASTIM
  6. DILATREND [Concomitant]
     Active Substance: CARVEDILOL
  7. SANCUSO [Concomitant]
     Active Substance: GRANISETRON
  8. HALAVEN [Suspect]
     Active Substance: ERIBULIN MESYLATE
     Route: 041
     Dates: start: 20170307, end: 20170622

REACTIONS (1)
  - Neutropenia [Recovered/Resolved]

NARRATIVE: CASE EVENT DATE: 20170404
